FAERS Safety Report 20008125 (Version 8)
Quarter: 2023Q1

REPORT INFORMATION
  Report Type: Report from Study
  Country: BR (occurrence: BR)
  Receive Date: 20211028
  Receipt Date: 20230102
  Transmission Date: 20230418
  Serious: Yes (Hospitalization, Other)
  Sender: FDA-Public Use
  Company Number: BR-GLAXOSMITHKLINE-BR2019AMR155558

PATIENT

DRUGS (14)
  1. BELIMUMAB [Suspect]
     Active Substance: BELIMUMAB
     Indication: Systemic lupus erythematosus
     Dosage: UNK
     Route: 042
     Dates: start: 20190218
  2. BELIMUMAB [Suspect]
     Active Substance: BELIMUMAB
     Dosage: UNK
     Route: 042
     Dates: start: 20191004
  3. BELIMUMAB [Suspect]
     Active Substance: BELIMUMAB
     Dosage: UNK
     Route: 042
     Dates: start: 20200120
  4. BELIMUMAB [Suspect]
     Active Substance: BELIMUMAB
     Dosage: UNK
     Route: 042
     Dates: start: 20200226
  5. BELIMUMAB [Suspect]
     Active Substance: BELIMUMAB
     Dosage: UNK
     Route: 042
     Dates: start: 20201026
  6. BELIMUMAB [Suspect]
     Active Substance: BELIMUMAB
     Dosage: UNK
     Route: 042
     Dates: start: 20201123
  7. BELIMUMAB [Suspect]
     Active Substance: BELIMUMAB
     Dosage: UNK
     Route: 042
     Dates: start: 20210215
  8. BELIMUMAB [Suspect]
     Active Substance: BELIMUMAB
     Dosage: UNK
     Route: 042
     Dates: start: 20210816
  9. BELIMUMAB [Suspect]
     Active Substance: BELIMUMAB
     Dosage: UNK
     Route: 042
     Dates: start: 20210927
  10. BELIMUMAB [Suspect]
     Active Substance: BELIMUMAB
     Dosage: UNK
     Route: 042
     Dates: start: 20220121
  11. BELIMUMAB [Suspect]
     Active Substance: BELIMUMAB
     Dosage: UNK
     Route: 042
     Dates: start: 20220228
  12. BELIMUMAB [Suspect]
     Active Substance: BELIMUMAB
     Dosage: UNK
     Route: 042
     Dates: start: 20220411
  13. BELIMUMAB [Suspect]
     Active Substance: BELIMUMAB
     Dosage: UNK
     Route: 042
     Dates: start: 20220523
  14. BELIMUMAB [Suspect]
     Active Substance: BELIMUMAB
     Dosage: UNK
     Route: 042
     Dates: start: 20221118

REACTIONS (24)
  - Infarction [Unknown]
  - Myocardial infarction [Unknown]
  - Wisdom teeth removal [Recovered/Resolved]
  - Suspected COVID-19 [Unknown]
  - SARS-CoV-2 test negative [Unknown]
  - Catheter placement [Unknown]
  - Angioplasty [Recovered/Resolved]
  - Chest pain [Unknown]
  - Neck pain [Unknown]
  - Pain in extremity [Unknown]
  - Myalgia [Unknown]
  - Pharyngeal inflammation [Unknown]
  - Rhinitis [Unknown]
  - Social problem [Unknown]
  - Myalgia [Not Recovered/Not Resolved]
  - Pharyngeal inflammation [Not Recovered/Not Resolved]
  - Rhinitis [Not Recovered/Not Resolved]
  - Oropharyngeal pain [Unknown]
  - Product dose omission issue [Unknown]
  - Incorrect product administration duration [Unknown]
  - Inappropriate schedule of product administration [Unknown]
  - Inappropriate schedule of product administration [Recovered/Resolved]
  - Suspected COVID-19 [Recovered/Resolved]
  - Oropharyngeal pain [Recovered/Resolved]

NARRATIVE: CASE EVENT DATE: 20210301
